FAERS Safety Report 8808193 (Version 1)
Quarter: 2012Q4

REPORT INFORMATION
  Report Type: 
  Country: US (occurrence: US)
  Receive Date: 20120925
  Receipt Date: 20120925
  Transmission Date: 20130627
  Serious: No
  Sender: FDA-Public Use
  Company Number: US-ASTRAZENECA-2012SE71270

PATIENT
  Age: 69 Year
  Sex: Female
  Weight: 104.3 kg

DRUGS (5)
  1. NEXIUM [Suspect]
     Indication: ULCER
     Route: 048
  2. CELEBREX [Suspect]
     Route: 065
  3. GENERIC FOR LOTREL [Concomitant]
     Indication: HYPERTENSION
  4. HCTZ [Concomitant]
     Indication: HYPERTENSION
  5. UNKNOWN MEDICATION FOR NAUSEA [Concomitant]
     Indication: NAUSEA

REACTIONS (7)
  - Ear congestion [Not Recovered/Not Resolved]
  - Balance disorder [Not Recovered/Not Resolved]
  - Asthenia [Not Recovered/Not Resolved]
  - Nausea [Recovered/Resolved]
  - Abdominal pain upper [Recovered/Resolved]
  - Dizziness [Not Recovered/Not Resolved]
  - Visual impairment [Unknown]
